FAERS Safety Report 8903296 (Version 1)
Quarter: 2012Q4

REPORT INFORMATION
  Report Type: 
  Country: US (occurrence: US)
  Receive Date: 20121112
  Receipt Date: 20121112
  Transmission Date: 20130627
  Serious: No
  Sender: FDA-Public Use
  Company Number: US-ASTRAZENECA-2012SE80161

PATIENT
  Age: 49 Year
  Sex: Female

DRUGS (3)
  1. SYMBICORT PMDI [Suspect]
     Route: 055
  2. NEXIUM [Suspect]
     Route: 048
  3. CRESTOR [Suspect]
     Route: 048

REACTIONS (7)
  - Pain [Unknown]
  - Nasal congestion [Unknown]
  - Influenza [Unknown]
  - Pneumonia [Unknown]
  - Adverse event [Unknown]
  - Cough [Unknown]
  - Fatigue [Unknown]
